FAERS Safety Report 9460468 (Version 9)
Quarter: 2013Q4

REPORT INFORMATION
  Report Type: Report from Study
  Country: US (occurrence: US)
  Receive Date: 20130815
  Receipt Date: 20131204
  Transmission Date: 20140711
  Serious: Yes (Hospitalization, Other)
  Sender: FDA-Public Use
  Company Number: US-ACTELION-A-NJ2013-86916

PATIENT
  Age: 73 Year
  Sex: Female

DRUGS (5)
  1. TRACLEER [Suspect]
     Indication: PULMONARY ARTERIAL HYPERTENSION
     Dosage: UNK
     Route: 048
  2. VENTAVIS [Suspect]
     Indication: PULMONARY ARTERIAL HYPERTENSION
     Dosage: UNK
     Route: 055
  3. TYVASO [Suspect]
  4. SILDENAFIL [Concomitant]
  5. COUMADIN [Concomitant]

REACTIONS (13)
  - Gastric ulcer haemorrhage [Unknown]
  - Fluid retention [Unknown]
  - Rash [Unknown]
  - Cor pulmonale [Unknown]
  - Rash erythematous [Unknown]
  - Syncope [Unknown]
  - Swelling face [Unknown]
  - Eyelid oedema [Unknown]
  - Dyspnoea [Unknown]
  - Oedema [Unknown]
  - Nasal congestion [Unknown]
  - Nausea [Unknown]
  - Vomiting [Unknown]
